FAERS Safety Report 7500429-9 (Version None)
Quarter: 2011Q2

REPORT INFORMATION
  Report Type: 
  Country: None (occurrence: None)
  Receive Date: 20110524
  Receipt Date: 20110325
  Transmission Date: 20111010
  Serious: No
  Sender: FDA-Public Use
  Company Number: US-BRISTOL-MYERS SQUIBB COMPANY-15609480

PATIENT
  Age: 63 Year
  Sex: Male
  Weight: 119 kg

DRUGS (9)
  1. SYNTHROID [Concomitant]
  2. PROSCAR [Concomitant]
  3. VASOTEC [Concomitant]
  4. ACTOS [Concomitant]
  5. GLYBURIDE [Concomitant]
  6. CARDIZEM CD [Concomitant]
  7. ONGLYZA [Suspect]
     Indication: DIABETES MELLITUS
     Route: 048
     Dates: start: 20110310, end: 20110315
  8. KLOR-CON [Concomitant]
  9. LASIX [Concomitant]

REACTIONS (3)
  - DRUG INEFFECTIVE [None]
  - HEADACHE [None]
  - FLATULENCE [None]
